FAERS Safety Report 6027216-5 (Version None)
Quarter: 2008Q4

REPORT INFORMATION
  Report Type: 
  Country: None (occurrence: None)
  Receive Date: 20081231
  Receipt Date: 20081231
  Transmission Date: 20090506
  Serious: Yes (Other)
  Sender: FDA-Public Use
  Company Number: None

PATIENT
  Sex: Female
  Weight: 58.9676 kg

DRUGS (3)
  1. BONIVA [Suspect]
     Indication: OSTEOPOROSIS
     Dosage: 150 MG MONTHLY PO
     Route: 048
     Dates: start: 20080801, end: 20081217
  2. BONIVA [Suspect]
     Indication: PROPHYLAXIS
     Dosage: 150 MG MONTHLY PO
     Route: 048
     Dates: start: 20080801, end: 20081217
  3. FOSAMAX [Suspect]
     Indication: OSTEOPOROSIS
     Dosage: WEEKLY PO
     Route: 048
     Dates: start: 19980101, end: 20080101

REACTIONS (12)
  - ACTIVITIES OF DAILY LIVING IMPAIRED [None]
  - ARTHRALGIA [None]
  - BACK PAIN [None]
  - DYSSTASIA [None]
  - GAIT DISTURBANCE [None]
  - GENERAL PHYSICAL HEALTH DETERIORATION [None]
  - LOWER LIMB FRACTURE [None]
  - NO THERAPEUTIC RESPONSE [None]
  - PAIN IN JAW [None]
  - SPINAL COLUMN STENOSIS [None]
  - TREATMENT FAILURE [None]
  - WALKING AID USER [None]
